FAERS Safety Report 4657316-3 (Version None)
Quarter: 2005Q2

REPORT INFORMATION
  Report Type: 
  Country: None (occurrence: None)
  Receive Date: 20050408
  Receipt Date: 20041211
  Transmission Date: 20051028
  Serious: No
  Sender: FDA-Public Use
  Company Number: 235996K04USA

PATIENT
  Sex: Female

DRUGS (2)
  1. REBIF [Suspect]
     Dosage: 44 MCG
  2. NERVE PILL (ALL OTHER THERAPEUTIC PRODUCTS) [Concomitant]

REACTIONS (2)
  - ANOREXIA [None]
  - DIZZINESS [None]
